FAERS Safety Report 8991202 (Version 1)
Quarter: 2012Q4

REPORT INFORMATION
  Report Type: Spontaneous
  Country: US (occurrence: None)
  Receive Date: 20121227
  Receipt Date: 20121227
  Transmission Date: 20130627
  Serious: No
  Sender: FDA-Public Use
  Company Number: None

PATIENT
  Sex: Female
  Weight: 103.87 kg

DRUGS (1)
  1. FLUOROURACIL [Suspect]
     Indication: COLON CANCER

REACTIONS (1)
  - Product contamination physical [None]
